FAERS Safety Report 13077015 (Version 2)
Quarter: 2017Q2

REPORT INFORMATION
  Report Type: Spontaneous
  Country: FR (occurrence: FR)
  Receive Date: 20161230
  Receipt Date: 20170421
  Transmission Date: 20170830
  Serious: Yes (Death, Hospitalization, Other)
  Sender: FDA-Public Use
  Company Number: FR-ASTRAZENECA-2016SF36504

PATIENT
  Age: 943 Month
  Sex: Female

DRUGS (4)
  1. PROPANOLOL [Concomitant]
     Active Substance: PROPRANOLOL HYDROCHLORIDE
  2. TARCEVA [Suspect]
     Active Substance: ERLOTINIB HYDROCHLORIDE
     Indication: LUNG ADENOCARCINOMA
     Route: 065
     Dates: start: 201606, end: 20161013
  3. TAGRISSO [Suspect]
     Active Substance: OSIMERTINIB
     Indication: LUNG ADENOCARCINOMA
     Route: 048
     Dates: start: 20161014, end: 20161031
  4. ALTEIS [Concomitant]
     Active Substance: OLMESARTAN MEDOXOMIL

REACTIONS (7)
  - Aplasia [Fatal]
  - Subileus [Fatal]
  - Malignant neoplasm progression [Unknown]
  - Pneumonitis [Unknown]
  - Clostridium difficile infection [Unknown]
  - Interstitial lung disease [Recovering/Resolving]
  - Lymphangiosis carcinomatosa [Unknown]

NARRATIVE: CASE EVENT DATE: 201610
